FAERS Safety Report 9010428 (Version 1)
Quarter: 2013Q1

REPORT INFORMATION
  Report Type: Report from Study
  Country: GB (occurrence: GB)
  Receive Date: 20130109
  Receipt Date: 20130109
  Transmission Date: 20140127
  Serious: Yes (Other)
  Sender: FDA-Public Use
  Company Number: GB-ROCHE-1177688

PATIENT
  Sex: Female
  Weight: 97 kg

DRUGS (4)
  1. TOCILIZUMAB [Suspect]
     Indication: RHEUMATOID ARTHRITIS
     Dosage: DATE LAST DOSE PRIOR TO SAE 21/MAY/2012
     Route: 065
     Dates: start: 20120319
  2. SULPHASALAZINE [Concomitant]
  3. METHOTREXATE [Concomitant]
  4. HYDROXYCHLOROQUINE [Concomitant]

REACTIONS (2)
  - Joint injury [Unknown]
  - Fall [Unknown]
